FAERS Safety Report 4714305-8 (Version None)
Quarter: 2005Q3

REPORT INFORMATION
  Report Type: 
  Country: None (occurrence: None)
  Receive Date: 20050714
  Receipt Date: 20050706
  Transmission Date: 20060218
  Serious: Yes (Disabling)
  Sender: FDA-Public Use
  Company Number: US-MERCK-0507USA00947

PATIENT
  Age: 41 Year
  Sex: Female
  Weight: 64 kg

DRUGS (4)
  1. VIOXX [Suspect]
     Indication: PAIN
     Route: 048
  2. VIOXX [Suspect]
     Indication: ENDOMETRIOSIS
     Route: 048
  3. [THERAPY UNSPECIFIED] [Concomitant]
     Route: 065
  4. [THERAPY UNSPECIFIED] [Concomitant]
     Route: 065

REACTIONS (4)
  - CEREBROVASCULAR ACCIDENT [None]
  - DEEP VEIN THROMBOSIS [None]
  - GANGRENE [None]
  - PRESCRIBED OVERDOSE [None]
